FAERS Safety Report 8134842-6 (Version None)
Quarter: 2012Q1

REPORT INFORMATION
  Report Type: 
  Country: None (occurrence: None)
  Receive Date: 20120214
  Receipt Date: 20120206
  Transmission Date: 20120608
  Serious: Yes (Other)
  Sender: FDA-Public Use
  Company Number: US-BAYER-201014822NA

PATIENT
  Age: 29 Year
  Sex: Female
  Weight: 68.027 kg

DRUGS (3)
  1. YASMIN [Suspect]
     Indication: CONTRACEPTION
     Route: 048
     Dates: start: 20010101, end: 20090615
  2. XANAX [Concomitant]
     Dosage: UNK UNK, PRN
  3. YAZ [Suspect]
     Indication: CONTRACEPTION
     Route: 048
     Dates: end: 20090615

REACTIONS (1)
  - DEEP VEIN THROMBOSIS [None]
